FAERS Safety Report 4732930-5 (Version None)
Quarter: 2005Q3

REPORT INFORMATION
  Report Type: 
  Country: None (occurrence: None)
  Receive Date: 20050803
  Receipt Date: 20050601
  Transmission Date: 20060218
  Serious: No
  Sender: FDA-Public Use
  Company Number: US-GLAXOSMITHKLINE-A0560765A

PATIENT
  Age: 76 Year
  Sex: Female

DRUGS (7)
  1. AVANDAMET [Suspect]
     Route: 048
  2. AVANDIA [Suspect]
     Dosage: 8MG PER DAY
     Route: 048
     Dates: start: 20050301
  3. LIPITOR [Concomitant]
  4. ACCUPRIL [Concomitant]
  5. SYNTHROID [Concomitant]
  6. ASPIRIN [Concomitant]
  7. METFORMIN [Concomitant]

REACTIONS (3)
  - DIARRHOEA [None]
  - WEIGHT DECREASED [None]
  - WEIGHT INCREASED [None]
